FAERS Safety Report 7429720-1 (Version None)
Quarter: 2011Q2

REPORT INFORMATION
  Report Type: 
  Country: None (occurrence: None)
  Receive Date: 20110414
  Receipt Date: 20110401
  Transmission Date: 20111010
  Serious: Yes (Hospitalization)
  Sender: FDA-Public Use
  Company Number: 027248

PATIENT
  Sex: Female
  Weight: 71 kg

DRUGS (2)
  1. CIMZIA [Suspect]
     Indication: CROHN'S DISEASE
     Dosage: 400 MG 1X/MONTH, SUBCUTANEOUS
     Route: 058
     Dates: start: 20100901
  2. CIMZIA [Suspect]
     Indication: INFLAMMATION
     Dosage: 400 MG 1X/MONTH, SUBCUTANEOUS
     Route: 058
     Dates: start: 20100901

REACTIONS (6)
  - INTESTINAL STENOSIS [None]
  - ABDOMINAL ADHESIONS [None]
  - MEDICAL DEVICE COMPLICATION [None]
  - SMALL INTESTINAL OBSTRUCTION [None]
  - GASTROINTESTINAL STOMA COMPLICATION [None]
  - INTESTINAL FISTULA [None]
